FAERS Safety Report 9737354 (Version 1)
Quarter: 2013Q4

REPORT INFORMATION
  Report Type: Spontaneous
  Country: US (occurrence: US)
  Receive Date: 20131206
  Receipt Date: 20131206
  Transmission Date: 20140711
  Serious: No
  Sender: FDA-Public Use
  Company Number: US-BIOGENIDEC-2013BI098429

PATIENT
  Age: 51 Year
  Sex: Female

DRUGS (13)
  1. TECFIDERA [Suspect]
     Indication: MULTIPLE SCLEROSIS
     Route: 048
     Dates: start: 20130924
  2. AMBIEN [Concomitant]
  3. BACLOFEN [Concomitant]
  4. CELEXA [Concomitant]
  5. CYANOCOBALAMIN [Concomitant]
  6. DIOVAN [Concomitant]
  7. ECOTRIN [Concomitant]
  8. EVOXAC [Concomitant]
  9. KLONOPIN [Concomitant]
  10. SYNTHROID [Concomitant]
  11. TRILEPTAL [Concomitant]
  12. ULTRAM [Concomitant]
  13. VITAMIN D [Concomitant]

REACTIONS (3)
  - Abdominal pain [Not Recovered/Not Resolved]
  - Nausea [Not Recovered/Not Resolved]
  - Diarrhoea [Not Recovered/Not Resolved]
